FAERS Safety Report 6634039-2 (Version None)
Quarter: 2010Q1

REPORT INFORMATION
  Report Type: 
  Country: None (occurrence: None)
  Receive Date: 20100315
  Receipt Date: 20100309
  Transmission Date: 20100710
  Serious: Yes (Death)
  Sender: FDA-Public Use
  Company Number: PHEH2010US02990

PATIENT
  Sex: Female

DRUGS (7)
  1. EXFORGE [Suspect]
     Dosage: 320/5 MG
     Route: 048
  2. NEXIUM [Concomitant]
     Dosage: 40 MG, UNK
  3. ACTONEL [Concomitant]
     Dosage: 35 MG, UNK
  4. LIPITOR [Concomitant]
     Dosage: 20 MG, UNK
  5. ULTRAM [Concomitant]
     Dosage: UNK
  6. PLAVIX [Concomitant]
  7. COZAAR [Concomitant]

REACTIONS (1)
  - DEATH [None]
